FAERS Safety Report 8059228-4 (Version None)
Quarter: 2012Q1

REPORT INFORMATION
  Report Type: 
  Country: None (occurrence: None)
  Receive Date: 20120120
  Receipt Date: 20120117
  Transmission Date: 20120608
  Serious: No
  Sender: FDA-Public Use
  Company Number: JP-PFIZER INC-2011304758

PATIENT
  Age: 75 Year
  Sex: Female
  Weight: 46 kg

DRUGS (9)
  1. LYRICA [Suspect]
     Indication: NEURALGIA
     Dosage: 25 MG, 1X/DAY
     Route: 048
     Dates: start: 20111203, end: 20111203
  2. AMOBAN [Suspect]
     Indication: INSOMNIA
     Dosage: 7.5 MG, 1X/DAY
     Route: 048
     Dates: start: 20101114
  3. PROMACTA [Concomitant]
     Dosage: UNK
  4. ZOLPIDEM [Suspect]
     Indication: INSOMNIA
     Dosage: 5 MG, 1X/DAY
     Route: 048
     Dates: start: 20101114
  5. ASPIRIN [Concomitant]
     Dosage: UNK
  6. CYTOTEC [Concomitant]
     Dosage: UNK
  7. CALCIUM CARBONATE [Concomitant]
     Dosage: UNK
  8. MUCOSIL-10 [Concomitant]
     Dosage: UNK
  9. METHYCOBAL [Concomitant]
     Dosage: UNK

REACTIONS (1)
  - RESTLESSNESS [None]
